FAERS Safety Report 6019192-6 (Version None)
Quarter: 2008Q4

REPORT INFORMATION
  Report Type: 
  Country: None (occurrence: None)
  Receive Date: 20081224
  Receipt Date: 20081214
  Transmission Date: 20090506
  Serious: Yes (Other)
  Sender: FDA-Public Use
  Company Number: HK-PFIZER INC-2008153456

PATIENT

DRUGS (1)
  1. DILANTIN [Suspect]
     Dosage: 100 MG, 3X/DAY
     Dates: start: 20080901

REACTIONS (2)
  - DIPLOPIA [None]
  - GAIT DISTURBANCE [None]
